FAERS Safety Report 19946096 (Version 2)
Quarter: 2021Q4

REPORT INFORMATION
  Report Type: Report from Study
  Country: CN (occurrence: CN)
  Receive Date: 20211012
  Receipt Date: 20211019
  Transmission Date: 20220303
  Serious: Yes (Hospitalization)
  Sender: FDA-Public Use
  Company Number: CN-KARYOPHARM-2021KPT001215

PATIENT
  Age: 61 Year
  Sex: Male

DRUGS (6)
  1. SELINEXOR [Suspect]
     Active Substance: SELINEXOR
     Indication: Plasma cell myeloma
     Dosage: 80 MG, 2X/WEEK
     Route: 048
     Dates: start: 20201023, end: 20201029
  2. SELINEXOR [Suspect]
     Active Substance: SELINEXOR
     Dosage: 100 MG, WEEKLY
     Route: 048
     Dates: start: 20201105
  3. SELINEXOR [Suspect]
     Active Substance: SELINEXOR
     Dosage: 80 MG, WEEKLY
     Route: 048
     Dates: start: 20201126
  4. SELINEXOR [Suspect]
     Active Substance: SELINEXOR
     Dosage: 60 MG, WEEKLY
     Route: 048
     Dates: start: 20210701
  5. SELINEXOR [Suspect]
     Active Substance: SELINEXOR
     Dosage: 40 MG, WEEKLY
     Route: 048
     Dates: start: 20210806, end: 20210903
  6. DEXAMETHASONE [Suspect]
     Active Substance: DEXAMETHASONE
     Indication: Plasma cell myeloma
     Dosage: 20 MG, 2X/WEEK
     Dates: start: 20201023, end: 20210905

REACTIONS (1)
  - Cataract [Recovering/Resolving]

NARRATIVE: CASE EVENT DATE: 20210908
